FAERS Safety Report 11021967 (Version 3)
Quarter: 2016Q1

REPORT INFORMATION
  Report Type: Report from Study
  Country: ES (occurrence: ES)
  Receive Date: 20150413
  Receipt Date: 20160222
  Transmission Date: 20160525
  Serious: Yes (Death, Other)
  Sender: FDA-Public Use
  Company Number: ES-CELGENE-144-21880-13074307

PATIENT

DRUGS (6)
  1. MELPHALAN [Concomitant]
     Active Substance: MELPHALAN
     Indication: PLASMA CELL MYELOMA
     Dosage: 9 MILLIGRAM/SQ. METER
     Route: 048
  2. BORTEZOMIB [Concomitant]
     Active Substance: BORTEZOMIB
     Indication: PLASMA CELL MYELOMA
     Route: 041
  3. PREDNISONE. [Concomitant]
     Active Substance: PREDNISONE
     Indication: PLASMA CELL MYELOMA
     Dosage: 60 MILLIGRAM/SQ. METER
     Route: 048
  4. REVLIMID [Suspect]
     Active Substance: LENALIDOMIDE
     Indication: PLASMA CELL MYELOMA
     Dosage: 25 MILLIGRAM
     Route: 048
  5. DEXAMETHASONE. [Concomitant]
     Active Substance: DEXAMETHASONE
     Indication: PLASMA CELL MYELOMA
     Route: 065
  6. BORTEZOMIB [Concomitant]
     Active Substance: BORTEZOMIB
     Route: 041

REACTIONS (18)
  - Sudden death [Fatal]
  - Myocardial infarction [Fatal]
  - Neutropenia [Unknown]
  - Deep vein thrombosis [Unknown]
  - Neuropathy peripheral [Unknown]
  - Infection [Fatal]
  - Gastrointestinal haemorrhage [Fatal]
  - Thrombocytopenia [Unknown]
  - Anaemia [Unknown]
  - Toxicity to various agents [Unknown]
  - Cardiac arrest [Fatal]
  - Death [Fatal]
  - Embolism [Unknown]
  - Rash [Unknown]
  - Plasma cell myeloma [Unknown]
  - Respiratory tract infection [Fatal]
  - Infection [Unknown]
  - Gastrointestinal toxicity [Unknown]
